FAERS Safety Report 13088680 (Version 4)
Quarter: 2018Q4

REPORT INFORMATION
  Report Type: Report from Study
  Country: DE (occurrence: DE)
  Receive Date: 20170105
  Receipt Date: 20181016
  Transmission Date: 20190204
  Serious: Yes (Death)
  Sender: FDA-Public Use
  Company Number: DE-EISAI MEDICAL RESEARCH-EC-2016-023523

PATIENT
  Age: 59 Year
  Sex: Female
  Weight: 85 kg

DRUGS (2)
  1. HALAVEN [Suspect]
     Active Substance: ERIBULIN MESYLATE
     Indication: BREAST CANCER
     Dosage: 1.23 MG/QM
     Route: 041
     Dates: start: 20161007, end: 20161014
  2. HALAVEN [Suspect]
     Active Substance: ERIBULIN MESYLATE
     Dosage: 0.97 MG/QM
     Route: 041
     Dates: start: 20161028, end: 20161125

REACTIONS (5)
  - Abdominal pain upper [Not Recovered/Not Resolved]
  - Malignant neoplasm progression [Fatal]
  - Decreased appetite [Not Recovered/Not Resolved]
  - Neutropenia [Recovered/Resolved]
  - Fatigue [Not Recovered/Not Resolved]

NARRATIVE: CASE EVENT DATE: 20161014
